FAERS Safety Report 10072023 (Version 1)
Quarter: 2014Q2

REPORT INFORMATION
  Report Type: Spontaneous
  Country: TW (occurrence: None)
  Receive Date: 20140409
  Receipt Date: 20140409
  Transmission Date: 20141212
  Serious: Yes (Life-Threatening)
  Sender: FDA-Public Use
  Company Number: FK201401166

PATIENT
  Age: 61 Year
  Sex: Female

DRUGS (3)
  1. AMIODARONE HCL [Suspect]
     Indication: VENTRICULAR EXTRASYSTOLES
     Route: 040
  2. DIGOXIN [Suspect]
     Indication: ATRIAL FIBRILLATION
  3. DIGOXIN [Suspect]
     Indication: CARDIAC FAILURE

REACTIONS (2)
  - Torsade de pointes [None]
  - Drug interaction [None]
